FAERS Safety Report 25637924 (Version 2)
Quarter: 2025Q3

REPORT INFORMATION
  Report Type: Spontaneous
  Country: US (occurrence: US)
  Receive Date: 20250804
  Receipt Date: 20250903
  Transmission Date: 20251020
  Serious: No
  Sender: BOEHRINGER INGELHEIM
  Company Number: US-Komodo Health-a23aa000009Da5JAAS

PATIENT
  Sex: Female

DRUGS (1)
  1. SPIRIVA RESPIMAT [Suspect]
     Active Substance: TIOTROPIUM BROMIDE
     Indication: Total lung capacity increased

REACTIONS (4)
  - Dyspnoea [Unknown]
  - Hypopnoea [Unknown]
  - Intentional product use issue [Unknown]
  - Device malfunction [Unknown]
